FAERS Safety Report 6296052-7 (Version None)
Quarter: 2009Q3

REPORT INFORMATION
  Report Type: 
  Country: None (occurrence: None)
  Receive Date: 20090804
  Receipt Date: 20090730
  Transmission Date: 20100115
  Serious: Yes (Hospitalization)
  Sender: FDA-Public Use
  Company Number: US-BRISTOL-MYERS SQUIBB COMPANY-14693030

PATIENT
  Age: 71 Year
  Sex: Male
  Weight: 81 kg

DRUGS (12)
  1. IXEMPRA KIT [Suspect]
     Indication: NON-SMALL CELL LUNG CANCER
     Dosage: 18JUN09:1 COURSE 14JUL09
     Dates: start: 20090618
  2. CARBOPLATIN [Suspect]
     Indication: NON-SMALL CELL LUNG CANCER
     Dosage: 18JUN09:1 COURSE 14JUL09
     Dates: start: 20090618
  3. SYMBICORT [Concomitant]
     Dosage: 2 DF = 2 PUFFS
  4. PREDNISONE TAB [Concomitant]
     Dosage: TAPERED DOSING
  5. FLOMAX [Concomitant]
     Dosage: 1 DF = 0.4 (UNIT NOT SPECIFIED)
  6. XANAX [Concomitant]
  7. ALBUTEROL [Concomitant]
     Dosage: QID NEBULIZER
  8. ZOCOR [Concomitant]
     Dosage: FREQUENCY: QHS.
  9. LOPRESSOR [Concomitant]
  10. VENTOLIN [Concomitant]
     Dosage: VENTOLIN NEBULIZER 3-4TIMES/DAY
  11. AUGMENTIN [Concomitant]
     Dosage: X10 DAYS
  12. DOXYCYCLINE [Concomitant]

REACTIONS (4)
  - ATRIAL FIBRILLATION [None]
  - CHRONIC OBSTRUCTIVE PULMONARY DISEASE [None]
  - DYSPNOEA [None]
  - MYOCARDIAL INFARCTION [None]
